FAERS Safety Report 6057884-3 (Version None)
Quarter: 2009Q1

REPORT INFORMATION
  Report Type: 
  Country: None (occurrence: None)
  Receive Date: 20090126
  Receipt Date: 20090112
  Transmission Date: 20090719
  Serious: Yes (Hospitalization, Other)
  Sender: FDA-Public Use
  Company Number: 55980

PATIENT
  Age: 13 Year
  Sex: Male

DRUGS (1)
  1. PROPOFOL [Suspect]
     Indication: ANAESTHESIA
     Dosage: 100-200 UG/KG/MIN

REACTIONS (1)
  - DIABETES INSIPIDUS [None]
